FAERS Safety Report 15539910 (Version 1)
Quarter: 2018Q4

REPORT INFORMATION
  Report Type: Spontaneous
  Country: DZ (occurrence: DZ)
  Receive Date: 20181023
  Receipt Date: 20181023
  Transmission Date: 20190205
  Serious: No
  Sender: FDA-Public Use
  Company Number: DZ-IPSEN BIOPHARMACEUTICALS, INC.-2018-16169

PATIENT
  Age: 40 Year
  Sex: Female

DRUGS (2)
  1. DECAPEPTYL SR 11.25MG [Suspect]
     Active Substance: TRIPTORELIN PAMOATE
     Indication: OFF LABEL USE
  2. DECAPEPTYL SR 11.25MG [Suspect]
     Active Substance: TRIPTORELIN PAMOATE
     Indication: BLADDER CANCER
     Route: 030
     Dates: start: 20180905

REACTIONS (2)
  - Dizziness [Unknown]
  - Off label use [Unknown]
